FAERS Safety Report 12990081 (Version 3)
Quarter: 2016Q4

REPORT INFORMATION
  Report Type: Report from Study
  Country: US (occurrence: US)
  Receive Date: 20161201
  Receipt Date: 20161223
  Transmission Date: 20170207
  Serious: Yes (Other)
  Sender: FDA-Public Use
  Company Number: PHEH2016US031102

PATIENT
  Age: 64 Year
  Sex: Female
  Weight: 73.94 kg

DRUGS (1)
  1. GILENYA [Suspect]
     Active Substance: FINGOLIMOD HYDROCHLORIDE
     Indication: MULTIPLE SCLEROSIS
     Dosage: 0.5 MG, QD
     Route: 048
     Dates: start: 2015, end: 201612

REACTIONS (1)
  - JC virus test positive [Not Recovered/Not Resolved]

NARRATIVE: CASE EVENT DATE: 20161117
